FAERS Safety Report 4543024-6 (Version None)
Quarter: 2005Q1

REPORT INFORMATION
  Report Type: 
  Country: None (occurrence: None)
  Receive Date: 20050103
  Receipt Date: 20041223
  Transmission Date: 20050727
  Serious: Yes (Life-Threatening, Hospitalization)
  Sender: FDA-Public Use
  Company Number: US-JNJFOC-20041202685

PATIENT
  Age: 34 Year
  Sex: Male

DRUGS (5)
  1. REMICADE [Suspect]
     Indication: REITER'S SYNDROME
     Dosage: FIRST INFUSION
     Route: 042
  2. NEXIUM [Concomitant]
  3. DIOVAN [Concomitant]
  4. INDOCIN [Concomitant]
  5. EFFEXOR [Concomitant]

REACTIONS (1)
  - AUTOIMMUNE HEPATITIS [None]
